FAERS Safety Report 4401264-0 (Version None)
Quarter: 2004Q3

REPORT INFORMATION
  Report Type: 
  Country: None (occurrence: None)
  Receive Date: 20040907
  Receipt Date: 20040126
  Transmission Date: 20050211
  Serious: Yes (Hospitalization)
  Sender: FDA-Public Use
  Company Number: US-BRISTOL-MYERS SQUIBB COMPANY-12487757

PATIENT
  Age: 41 Year
  Sex: Female
  Weight: 113 kg

DRUGS (1)
  1. COUMADIN [Suspect]
     Indication: DEEP VEIN THROMBOSIS
     Dosage: CURRENT DOSE: 7.5 MG 3 DAY PER WEEK PLUS 5.0 MG 4 DAYS PER WEEK.

REACTIONS (3)
  - INTERNATIONAL NORMALISED RATIO INCREASED [None]
  - TRACHEAL HAEMORRHAGE [None]
  - VAGINAL HAEMORRHAGE [None]
